FAERS Safety Report 25155473 (Version 3)
Quarter: 2025Q3

REPORT INFORMATION
  Report Type: Spontaneous
  Country: CA (occurrence: CA)
  Receive Date: 20250403
  Receipt Date: 20250922
  Transmission Date: 20251020
  Serious: Yes (Other)
  Sender: PFIZER
  Company Number: CA-PFIZER INC-202500070364

PATIENT
  Age: 60 Year
  Sex: Female

DRUGS (2)
  1. XELJANZ XR [Suspect]
     Active Substance: TOFACITINIB CITRATE
     Indication: Rheumatoid arthritis
     Dosage: 11 MG, 1X/DAY
     Route: 048
     Dates: start: 202306, end: 2025
  2. METHOTREXATE [Concomitant]
     Active Substance: METHOTREXATE
     Dosage: 1 DF, WEEKLY
     Route: 048

REACTIONS (13)
  - Myocardial infarction [Unknown]
  - Arrhythmia [Unknown]
  - Retinitis pigmentosa [Unknown]
  - Erythema multiforme [Unknown]
  - Cardiomyopathy [Unknown]
  - Asthma [Unknown]
  - Chronic obstructive pulmonary disease [Unknown]
  - Nephropathy [Unknown]
  - Condition aggravated [Unknown]
  - Hepatic steatosis [Unknown]
  - Spinal stenosis [Unknown]
  - Fibromyalgia [Unknown]
  - Chest pain [Recovered/Resolved]

NARRATIVE: CASE EVENT DATE: 20241001
